FAERS Safety Report 6882061-3 (Version None)
Quarter: 2010Q2

REPORT INFORMATION
  Report Type: 
  Country: None (occurrence: None)
  Receive Date: 20100630
  Receipt Date: 20090518
  Transmission Date: 20101027
  Serious: No
  Sender: FDA-Public Use
  Company Number: 2009-01095

PATIENT
  Age: 51 Year
  Sex: Male
  Weight: 102.0593 kg

DRUGS (4)
  1. ZICAM COLD REMEDY NASAL GEL [Suspect]
     Dosage: QID X 1 WEEK
  2. TRICOR [Concomitant]
  3. FISH OIL [Concomitant]
  4. VITAMIN E [Concomitant]

REACTIONS (2)
  - AGEUSIA [None]
  - ANOSMIA [None]
